FAERS Safety Report 4795735-5 (Version None)
Quarter: 2005Q3

REPORT INFORMATION
  Report Type: 
  Country: None (occurrence: None)
  Receive Date: 20050916
  Receipt Date: 20050708
  Transmission Date: 20060218
  Serious: Yes (Other)
  Sender: FDA-Public Use
  Company Number: US-JNJFOC-20050702012

PATIENT
  Age: 54 Year
  Sex: Female
  Weight: 79.3795 kg

DRUGS (2)
  1. TOPAMAX [Suspect]
     Indication: MUSCLE SPASMS
     Dosage: 300 MG, IN 1 DAY, ORAL; 150 MG, IN 1 DAY, ORAL
     Route: 048
     Dates: start: 20040101
  2. REMERON [Concomitant]

REACTIONS (3)
  - ANOREXIA [None]
  - NAUSEA [None]
  - WEIGHT DECREASED [None]
